FAERS Safety Report 4735121-7 (Version None)
Quarter: 2005Q3

REPORT INFORMATION
  Report Type: 
  Country: None (occurrence: None)
  Receive Date: 20050804
  Receipt Date: 20050715
  Transmission Date: 20060218
  Serious: No
  Sender: FDA-Public Use
  Company Number: USA0507102938

PATIENT
  Age: 25 Year
  Sex: Female

DRUGS (1)
  1. STRATTERA [Suspect]
     Dosage: 80 MG DAY
     Dates: start: 20040816, end: 20041001

REACTIONS (1)
  - LIVER DISORDER [None]
